FAERS Safety Report 18458976 (Version 1)
Quarter: 2020Q4

REPORT INFORMATION
  Report Type: Report from Study
  Country: BR (occurrence: BR)
  Receive Date: 20201103
  Receipt Date: 20201103
  Transmission Date: 20210114
  Serious: Yes (Other)
  Sender: FDA-Public Use
  Company Number: NVSC2020BR293412

PATIENT
  Sex: Female

DRUGS (2)
  1. MIFLONIDE [Suspect]
     Active Substance: BUDESONIDE
     Indication: PRODUCT USED FOR UNKNOWN INDICATION
     Dosage: 1 DF (AFTER BREKFAST)
     Route: 065
  2. ULTIBRO [Suspect]
     Active Substance: GLYCOPYRRONIUM\INDACATEROL
     Indication: PRODUCT USED FOR UNKNOWN INDICATION
     Dosage: UNK, (110/50 AFTER LUNCH)
     Route: 065

REACTIONS (6)
  - Vision blurred [Unknown]
  - Gait disturbance [Unknown]
  - Fatigue [Unknown]
  - Pulmonary embolism [Unknown]
  - Thrombosis [Unknown]
  - Visual impairment [Unknown]
